FAERS Safety Report 20153206 (Version 2)
Quarter: 2021Q4

REPORT INFORMATION
  Report Type: Spontaneous
  Country: HR (occurrence: HR)
  Receive Date: 20211206
  Receipt Date: 20211223
  Transmission Date: 20220304
  Serious: Yes (Death, Hospitalization, Other)
  Sender: FDA-Public Use
  Company Number: HR-009507513-2112HRV000287

PATIENT
  Age: 80 Year
  Sex: Male

DRUGS (9)
  1. PEMBROLIZUMAB [Suspect]
     Active Substance: PEMBROLIZUMAB
     Indication: Lung squamous cell carcinoma stage IV
     Dosage: ONGOING, PATIENT ON 5TH CYCLE
     Dates: start: 2021
  2. DABIGATRAN [Concomitant]
     Active Substance: DABIGATRAN
     Dosage: DABIGATRAN 2X110 MG TBL
     Route: 048
  3. NEBIVOLOL [Concomitant]
     Active Substance: NEBIVOLOL
     Dosage: 5MG 1X1 TBL
     Route: 048
  4. PANTOPRAZOLE [Concomitant]
     Active Substance: PANTOPRAZOLE
     Dosage: 40MG 1X1 TBL
     Route: 048
  5. TAMSULOSIN [Concomitant]
     Active Substance: TAMSULOSIN
     Dosage: 0.4MG 1X1 TBL
     Route: 048
  6. IPRATROPIUM BROMIDE [Concomitant]
     Active Substance: IPRATROPIUM BROMIDE
     Dosage: 3 BREATHS/DAY
  7. ALBUTEROL [Concomitant]
     Active Substance: ALBUTEROL
     Dosage: 2 BREATHS / DAY
  8. CARBO ANIMALIS [Concomitant]
     Active Substance: CARBO ANIMALIS
     Dosage: WHEN NEEDED
  9. LOPERAMIDE [Concomitant]
     Active Substance: LOPERAMIDE
     Dosage: 2 CAPS
     Route: 048

REACTIONS (8)
  - Respiratory failure [Fatal]
  - Pneumothorax [Unknown]
  - Pulmonary embolism [Unknown]
  - Immune-mediated enterocolitis [Recovered/Resolved]
  - Acute kidney injury [Unknown]
  - Clostridium test positive [Unknown]
  - General physical health deterioration [Unknown]
  - Electrolyte imbalance [Unknown]

NARRATIVE: CASE EVENT DATE: 20210101
